FAERS Safety Report 17317097 (Version 2)
Quarter: 2020Q1

REPORT INFORMATION
  Report Type: Spontaneous
  Country: US (occurrence: US)
  Receive Date: 20200124
  Receipt Date: 20200219
  Transmission Date: 20200409
  Serious: Yes (Other)
  Sender: FDA-Public Use
  Company Number: US-AMGEN-USASP2020009530

PATIENT
  Sex: Female

DRUGS (2)
  1. PROLIA [Suspect]
     Active Substance: DENOSUMAB
     Indication: PRODUCT USED FOR UNKNOWN INDICATION
     Dosage: UNK
     Route: 030
  2. HUMIRA [Suspect]
     Active Substance: ADALIMUMAB
     Indication: CROHN^S DISEASE
     Dosage: 40 MILLIGRAM, Q2WK
     Route: 058

REACTIONS (8)
  - Dizziness [Unknown]
  - Tooth extraction [Unknown]
  - Large intestinal haemorrhage [Unknown]
  - Skin cancer [Unknown]
  - Alveolar osteitis [Unknown]
  - Incorrect route of product administration [Unknown]
  - Adverse drug reaction [Unknown]
  - Skin papilloma [Unknown]
